FAERS Safety Report 4309908-9 (Version None)
Quarter: 2004Q1

REPORT INFORMATION
  Report Type: 
  Country: None (occurrence: None)
  Receive Date: 20040303
  Receipt Date: 20040123
  Transmission Date: 20041129
  Serious: Yes (Other)
  Sender: FDA-Public Use
  Company Number: US-BRISTOL-MYERS SQUIBB COMPANY-12485918

PATIENT
  Age: 20 Month
  Sex: Female
  Weight: 14 kg

DRUGS (1)
  1. ABILIFY [Suspect]

REACTIONS (3)
  - ACCIDENTAL OVERDOSE [None]
  - MEDICATION ERROR [None]
  - NO ADVERSE EFFECT [None]
